FAERS Safety Report 7351904-1 (Version None)
Quarter: 2011Q1

REPORT INFORMATION
  Report Type: 
  Country: None (occurrence: None)
  Receive Date: 20110315
  Receipt Date: 20110303
  Transmission Date: 20110831
  Serious: Yes (Other)
  Sender: FDA-Public Use
  Company Number: US-BAYER-200927157NA

PATIENT
  Sex: Female
  Weight: 60.317 kg

DRUGS (2)
  1. MIRENA [Suspect]
     Indication: CONTRACEPTION
     Dosage: CONTINUOUS
     Route: 015
     Dates: start: 20060706, end: 20090708
  2. MIRENA [Suspect]
     Indication: MENORRHAGIA

REACTIONS (5)
  - MENSTRUATION DELAYED [None]
  - VAGINAL HAEMORRHAGE [None]
  - BREAST TENDERNESS [None]
  - BLIGHTED OVUM [None]
  - PREGNANCY WITH CONTRACEPTIVE DEVICE [None]
